FAERS Safety Report 17402823 (Version 5)
Quarter: 2022Q3

REPORT INFORMATION
  Report Type: Spontaneous
  Country: US (occurrence: US)
  Receive Date: 20200211
  Receipt Date: 20220829
  Transmission Date: 20221027
  Serious: No
  Sender: FDA-Public Use
  Company Number: US-PFIZER INC-2020056898

PATIENT
  Age: 52 Year
  Sex: Male

DRUGS (4)
  1. XELJANZ XR [Suspect]
     Active Substance: TOFACITINIB CITRATE
     Indication: Psoriatic arthropathy
     Dosage: 11 MG, 1X/DAY
     Route: 048
     Dates: start: 20191210
  2. XELJANZ XR [Suspect]
     Active Substance: TOFACITINIB CITRATE
     Dosage: 11 MG
     Dates: start: 20200101
  3. XELJANZ XR [Suspect]
     Active Substance: TOFACITINIB CITRATE
     Dosage: 11 MG
     Dates: start: 20210928
  4. METHOTREXATE [Concomitant]
     Active Substance: METHOTREXATE

REACTIONS (10)
  - Product dose omission issue [Unknown]
  - Drug ineffective [Unknown]
  - Therapeutic response unexpected [Unknown]
  - Pre-existing condition improved [Unknown]
  - Psoriasis [Unknown]
  - Arthritis [Unknown]
  - Discomfort [Unknown]
  - Joint stiffness [Unknown]
  - Colonoscopy [Unknown]
  - Malaise [Unknown]

NARRATIVE: CASE EVENT DATE: 20201101
